APPROVED DRUG PRODUCT: AIRDUO RESPICLICK
Active Ingredient: FLUTICASONE PROPIONATE; SALMETEROL XINAFOATE
Strength: 0.055MG/INH;EQ 0.014MG BASE/INH
Dosage Form/Route: POWDER;INHALATION
Application: N208799 | Product #001
Applicant: TEVA PHARMACEUTICAL INDUSTRIES LTD
Approved: Jan 27, 2017 | RLD: Yes | RS: Yes | Type: RX

PATENTS:
Patent 9415008 | Expires: Oct 6, 2034
Patent 9066957 | Expires: Oct 6, 2034
Patent 10195375 | Expires: Feb 14, 2031
Patent 11969544 | Expires: Aug 20, 2039
Patent 9415008*PED | Expires: Apr 6, 2035
Patent 9066957*PED | Expires: Apr 6, 2035
Patent 10195375*PED | Expires: Aug 14, 2031
Patent 11969544*PED | Expires: Feb 20, 2040